FAERS Safety Report 4425363-2 (Version None)
Quarter: 2004Q3

REPORT INFORMATION
  Report Type: 
  Country: None (occurrence: None)
  Receive Date: 20040812
  Receipt Date: 20040812
  Transmission Date: 20050211
  Serious: No
  Sender: FDA-Public Use
  Company Number: None

PATIENT
  Age: 75 Year
  Sex: Male
  Weight: 66.2252 kg

DRUGS (10)
  1. GATIFLOXACIN [Suspect]
     Indication: URINARY TRACT INFECTION
     Dosage: 200 MG IV Q 48 H
     Route: 042
     Dates: start: 20040512, end: 20040528
  2. AMLODIPINE [Concomitant]
  3. ATENOLOL [Concomitant]
  4. CLINDAMYCIN [Concomitant]
  5. FERROUS SULFATE TAB [Concomitant]
  6. RANITIDINE [Concomitant]
  7. SIMVASTATIN [Concomitant]
  8. INSULIN [Concomitant]
  9. HYDRALAZINE HCL [Concomitant]
  10. DIGOXIN [Concomitant]

REACTIONS (1)
  - HYPOGLYCAEMIA [None]
